FAERS Safety Report 5383496-0 (Version None)
Quarter: 2007Q3

REPORT INFORMATION
  Report Type: 
  Country: None (occurrence: None)
  Receive Date: 20070706
  Receipt Date: 20070620
  Transmission Date: 20080115
  Serious: Yes (Life-Threatening)
  Sender: FDA-Public Use
  Company Number: 8024464

PATIENT
  Age: 48 Year
  Sex: Male

DRUGS (7)
  1. KEPPRA [Suspect]
     Indication: EPILEPSY
     Dosage: 750 MG 2/D PO
     Route: 048
     Dates: start: 20070313, end: 20070331
  2. KEPPRA [Suspect]
     Indication: EPILEPSY
     Dosage: 2500 MG/D
     Dates: start: 20070401, end: 20070401
  3. KEPPRA [Suspect]
     Indication: EPILEPSY
     Dosage: 1500 MG /D
     Dates: start: 20070402, end: 20070402
  4. KEPPRA [Suspect]
     Indication: EPILEPSY
     Dosage: 500 MG 1/D
     Dates: start: 20070403, end: 20070403
  5. KEPPRA [Suspect]
     Indication: EPILEPSY
     Dosage: 500 MG 1/D
     Dates: start: 20070405, end: 20070405
  6. KEPPRA [Suspect]
     Indication: EPILEPSY
     Dosage: 1000 MG/D
     Dates: start: 20070406, end: 20070406
  7. KEPPRA [Suspect]
     Indication: EPILEPSY
     Dosage: 750 MG 2/D
     Dates: start: 20070407, end: 20070407

REACTIONS (4)
  - HEPATIC NECROSIS [None]
  - LEUKOCYTOCLASTIC VASCULITIS [None]
  - VASCULITIS [None]
  - WEIGHT DECREASED [None]
